FAERS Safety Report 12209931 (Version 3)
Quarter: 2016Q3

REPORT INFORMATION
  Report Type: Report from Study
  Country: DE (occurrence: DE)
  Receive Date: 20160325
  Receipt Date: 20160731
  Transmission Date: 20161109
  Serious: Yes (Hospitalization)
  Sender: FDA-Public Use
  Company Number: DE-ROCHE-1731528

PATIENT
  Age: 76 Year
  Sex: Female

DRUGS (6)
  1. L THYROXIN [Concomitant]
     Active Substance: LEVOTHYROXINE SODIUM
  2. LEFLUNOMIDE. [Suspect]
     Active Substance: LEFLUNOMIDE
     Indication: RHEUMATOID ARTHRITIS
     Dosage: 10-20 MG
     Route: 065
  3. RITUXIMAB [Suspect]
     Active Substance: RITUXIMAB
     Indication: RHEUMATOID ARTHRITIS
     Dosage: MOST RECENT DOSE ADMINISTRATION: 24/MAR/2015
     Route: 065
     Dates: start: 201306
  4. PREDNISOLON [Concomitant]
     Active Substance: PREDNISOLONE
  5. RITUXIMAB [Suspect]
     Active Substance: RITUXIMAB
     Route: 065
     Dates: start: 201401
  6. RITUXIMAB [Suspect]
     Active Substance: RITUXIMAB
     Route: 065
     Dates: start: 201503

REACTIONS (2)
  - Uterine polyp [Unknown]
  - Invasive breast carcinoma [Recovered/Resolved]

NARRATIVE: CASE EVENT DATE: 20150831
